FAERS Safety Report 9887821 (Version 7)
Quarter: 2017Q1

REPORT INFORMATION
  Report Type: Spontaneous
  Country: US (occurrence: US)
  Receive Date: 20140211
  Receipt Date: 20170306
  Transmission Date: 20170429
  Serious: Yes (Hospitalization, Other)
  Sender: FDA-Public Use
  Company Number: US-009507513-1402USA004275

PATIENT
  Sex: Female
  Weight: 65.31 kg

DRUGS (3)
  1. NUVARING [Suspect]
     Active Substance: ETHINYL ESTRADIOL\ETONOGESTREL
     Indication: ENDOMETRIOSIS
  2. NUVARING [Suspect]
     Active Substance: ETHINYL ESTRADIOL\ETONOGESTREL
     Indication: UTERINE LEIOMYOMA
  3. NUVARING [Suspect]
     Active Substance: ETHINYL ESTRADIOL\ETONOGESTREL
     Indication: CONTRACEPTION
     Dosage: UNK UNK, UNKNOWN
     Route: 067
     Dates: start: 201309, end: 20131227

REACTIONS (11)
  - Splenectomy [Unknown]
  - Upper respiratory tract infection [Unknown]
  - Road traffic accident [Unknown]
  - Dyspepsia [Unknown]
  - Menorrhagia [Unknown]
  - Pulmonary embolism [Unknown]
  - Migraine [Unknown]
  - Off label use [Unknown]
  - Injury [Unknown]
  - Pneumonia [Unknown]
  - Treatment noncompliance [Unknown]

NARRATIVE: CASE EVENT DATE: 201312
